FAERS Safety Report 5363231-2 (Version None)
Quarter: 2007Q2

REPORT INFORMATION
  Report Type: 
  Country: None (occurrence: None)
  Receive Date: 20070530
  Receipt Date: 20070128
  Transmission Date: 20071010
  Serious: No
  Sender: FDA-Public Use
  Company Number: 2006PV025483

PATIENT
  Age: 51 Year
  Sex: Male
  Weight: 95.2554 kg

DRUGS (6)
  1. BYETTA [Suspect]
     Indication: DIABETES MELLITUS NON-INSULIN-DEPENDENT
     Dosage: 5 MCG;QD;SC ; 5 MCG;QD;SC ; 5 MCG;QD; SC
     Route: 058
     Dates: start: 20061111, end: 20060101
  2. BYETTA [Suspect]
     Indication: DIABETES MELLITUS NON-INSULIN-DEPENDENT
     Dosage: 5 MCG;QD;SC ; 5 MCG;QD;SC ; 5 MCG;QD; SC
     Route: 058
     Dates: start: 20061106, end: 20061201
  3. BYETTA [Suspect]
     Indication: DIABETES MELLITUS NON-INSULIN-DEPENDENT
     Dosage: 5 MCG;QD;SC ; 5 MCG;QD;SC ; 5 MCG;QD; SC
     Route: 058
     Dates: start: 20061201
  4. BYETTA [Suspect]
  5. GLUCOPHAGE [Concomitant]
  6. .. [Concomitant]

REACTIONS (11)
  - ABDOMINAL PAIN UPPER [None]
  - BLOOD GLUCOSE INCREASED [None]
  - COUGH [None]
  - DIARRHOEA [None]
  - INJECTION SITE HAEMORRHAGE [None]
  - INJECTION SITE IRRITATION [None]
  - INJECTION SITE RASH [None]
  - NASOPHARYNGITIS [None]
  - PHARYNGOLARYNGEAL PAIN [None]
  - RHINORRHOEA [None]
  - SNEEZING [None]
